FAERS Safety Report 11361081 (Version 2)
Quarter: 2015Q4

REPORT INFORMATION
  Report Type: Spontaneous
  Country: US (occurrence: US)
  Receive Date: 20150810
  Receipt Date: 20151112
  Transmission Date: 20160304
  Serious: Yes (Other)
  Sender: FDA-Public Use
  Company Number: US-PFIZER INC-2015264587

PATIENT
  Age: 57 Year
  Sex: Female

DRUGS (3)
  1. PREVACID [Concomitant]
     Active Substance: LANSOPRAZOLE
     Indication: GASTROOESOPHAGEAL REFLUX DISEASE
     Dosage: 30 MG, AS NEEDED (15MG 2 CAPSULES, TAKES TOTAL OF 30MG)
     Route: 048
     Dates: start: 2010
  2. ALPRAZOLAM. [Suspect]
     Active Substance: ALPRAZOLAM
     Indication: ANXIETY
     Dosage: (0.5 - 1.0 A DAY) MG, AS NEEDED (IMMEDIATE RELEASE, 0.5MG TABLETS)
     Route: 048
     Dates: start: 1999
  3. WELLBUTRIN XL [Concomitant]
     Active Substance: BUPROPION HYDROCHLORIDE
     Indication: DEPRESSION
     Dosage: 300 MG, DAILY
     Route: 048
     Dates: start: 1990

REACTIONS (4)
  - Loss of consciousness [Unknown]
  - Suspected counterfeit product [Unknown]
  - Drug ineffective [Not Recovered/Not Resolved]
  - Depression [Not Recovered/Not Resolved]
